FAERS Safety Report 7103540-X (Version None)
Quarter: 2010Q4

REPORT INFORMATION
  Report Type: 
  Country: None (occurrence: None)
  Receive Date: 20101115
  Receipt Date: 20101030
  Transmission Date: 20110411
  Serious: Yes (Hospitalization, Disabling)
  Sender: FDA-Public Use
  Company Number: US-BAYER-201023529BCC

PATIENT
  Age: 59 Year
  Sex: Female
  Weight: 104 kg

DRUGS (1)
  1. ASPIRIN [Suspect]
     Indication: PAIN IN EXTREMITY
     Dosage: EVERY 6 HOURS
     Route: 048

REACTIONS (3)
  - DIZZINESS [None]
  - HAEMATEMESIS [None]
  - HAEMORRHAGE [None]
